FAERS Safety Report 12874449 (Version 4)
Quarter: 2017Q3

REPORT INFORMATION
  Report Type: Report from Study
  Country: US (occurrence: US)
  Receive Date: 20161021
  Receipt Date: 20170901
  Transmission Date: 20171127
  Serious: Yes (Hospitalization)
  Sender: FDA-Public Use
  Company Number: US-INCYTE CORPORATION-2016IN006054

PATIENT

DRUGS (6)
  1. JAKAFI [Suspect]
     Active Substance: RUXOLITINIB
     Indication: PRODUCT USED FOR UNKNOWN INDICATION
     Dosage: VARIABLE DOSE (MAX DOSE 10 MG BID, MIN DOSE 5 MG BID)
     Route: 065
     Dates: start: 20160130
  2. PREDNISONE TABLETS USP (NGX) [Suspect]
     Active Substance: PREDNISONE
     Indication: INFLAMMATION
     Dosage: VARIABLE DOSE (MAX DOSE 60 MG BID, MIN DOSE 10 MG BID)
     Route: 065
     Dates: start: 20160113
  3. BLINDED CSJ148 [Suspect]
     Active Substance: INVESTIGATIONAL PRODUCT
     Indication: CYTOMEGALOVIRUS INFECTION
     Dosage: CODE NOT BROKEN
     Route: 042
     Dates: start: 20151124
  4. CELLCEPT [Suspect]
     Active Substance: MYCOPHENOLATE MOFETIL\MYCOPHENOLATE MOFETIL HYDROCHLORIDE
     Indication: PROPHYLAXIS AGAINST GRAFT VERSUS HOST DISEASE
     Dosage: 750 MG, Q8H
     Route: 065
     Dates: start: 20151203, end: 20151230
  5. PROGRAF [Suspect]
     Active Substance: TACROLIMUS\TACROLIMUS ANHYDROUS
     Indication: PROPHYLAXIS AGAINST GRAFT VERSUS HOST DISEASE
     Dosage: 1.5 MG (0.5 MG, QAM, 1 MG, QPM)
     Route: 065
     Dates: start: 20151203, end: 20151230
  6. PROGRAF [Suspect]
     Active Substance: TACROLIMUS\TACROLIMUS ANHYDROUS
     Dosage: UNK
     Route: 065
     Dates: start: 20151230

REACTIONS (4)
  - Pyrexia [Recovered/Resolved]
  - Acute graft versus host disease [Recovered/Resolved]
  - Escherichia bacteraemia [Recovered/Resolved]
  - Neutropenia [Recovered/Resolved]

NARRATIVE: CASE EVENT DATE: 20151226
